FAERS Safety Report 19407584 (Version 3)
Quarter: 2021Q3

REPORT INFORMATION
  Report Type: Spontaneous
  Country: FR (occurrence: FR)
  Receive Date: 20210612
  Receipt Date: 20210810
  Transmission Date: 20211014
  Serious: Yes (Other)
  Sender: FDA-Public Use
  Company Number: FR-TEVA-2021-FR-1921414

PATIENT
  Age: 80 Year
  Sex: Male
  Weight: 63.5 kg

DRUGS (3)
  1. SOTALOL TEVA [Suspect]
     Active Substance: SOTALOL HYDROCHLORIDE
     Indication: ATRIAL FIBRILLATION
  2. ELIQUIS [Concomitant]
     Active Substance: APIXABAN
     Indication: ATRIAL FIBRILLATION
     Dosage: 2 DOSAGE FORMS DAILY;
     Route: 048
     Dates: start: 20170707
  3. SOTALOL TEVA [Suspect]
     Active Substance: SOTALOL HYDROCHLORIDE
     Indication: HEART RATE
     Dosage: 2 DOSAGE FORMS DAILY;
     Route: 048
     Dates: start: 20120727, end: 20210604

REACTIONS (6)
  - Bradycardia [Recovered/Resolved]
  - Blood pressure decreased [Recovered/Resolved]
  - Palpitations [Unknown]
  - Vertigo [Unknown]
  - Ventricular asystole [Recovered/Resolved]
  - Presyncope [Recovered/Resolved]

NARRATIVE: CASE EVENT DATE: 20210526
